FAERS Safety Report 11270688 (Version 1)
Quarter: 2015Q3

REPORT INFORMATION
  Report Type: Spontaneous
  Country: US (occurrence: US)
  Receive Date: 20150714
  Receipt Date: 20150714
  Transmission Date: 20151125
  Serious: No
  Sender: FDA-Public Use
  Company Number: US-BAYER-2015-374473

PATIENT
  Age: 72 Year
  Sex: Female
  Weight: 36.28 kg

DRUGS (3)
  1. CENTRUM [Concomitant]
     Active Substance: VITAMINS
     Dosage: UNK
  2. ALEVE [Suspect]
     Active Substance: NAPROXEN SODIUM
     Indication: ANALGESIC THERAPY
     Dosage: 2 DF, BID
     Dates: start: 2015
  3. FIBER [Concomitant]
     Active Substance: PSYLLIUM HUSK
     Dosage: UNK

REACTIONS (3)
  - Drug ineffective [None]
  - Product use issue [None]
  - Product use issue [Unknown]
